FAERS Safety Report 9917924 (Version 1)
Quarter: 2014Q1

REPORT INFORMATION
  Report Type: Spontaneous
  Country: US (occurrence: US)
  Receive Date: 20140222
  Receipt Date: 20140222
  Transmission Date: 20141002
  Serious: Yes (Other)
  Sender: FDA-Public Use
  Company Number: US-ROCHE-1178208

PATIENT
  Age: 53 Year
  Sex: Female

DRUGS (5)
  1. AVASTIN [Suspect]
     Indication: OVARIAN CANCER
     Route: 042
     Dates: start: 20111012
  2. AVASTIN [Suspect]
     Route: 065
     Dates: start: 201112
  3. CYMBALTA [Concomitant]
     Route: 048
     Dates: start: 2010
  4. ABILIFY [Concomitant]
     Route: 048
     Dates: start: 2010
  5. FRAGMIN [Concomitant]
     Route: 058
     Dates: start: 2011

REACTIONS (4)
  - Hypersensitivity [Recovered/Resolved]
  - Eye pruritus [Unknown]
  - Headache [Unknown]
  - Rhinorrhoea [Unknown]
